APPROVED DRUG PRODUCT: COLESEVELAM HYDROCHLORIDE
Active Ingredient: COLESEVELAM HYDROCHLORIDE
Strength: 625MG
Dosage Form/Route: TABLET;ORAL
Application: A212050 | Product #001 | TE Code: AB
Applicant: INVENTIA HEALTHCARE LTD
Approved: Dec 4, 2020 | RLD: No | RS: No | Type: RX